FAERS Safety Report 4841495-9 (Version None)
Quarter: 2005Q4

REPORT INFORMATION
  Report Type: 
  Country: None (occurrence: None)
  Receive Date: 20051130
  Receipt Date: 20050808
  Transmission Date: 20060501
  Serious: No
  Sender: FDA-Public Use
  Company Number: US-GLAXOSMITHKLINE-A0569273A

PATIENT
  Age: 42 Year
  Sex: Female

DRUGS (5)
  1. WELLBUTRIN XL [Suspect]
     Indication: DEPRESSION
     Dosage: 450MG PER DAY
     Route: 048
  2. EFFEXOR [Concomitant]
  3. PROTONIX [Concomitant]
  4. MULTI-VITAMIN [Concomitant]
  5. KLONOPIN [Concomitant]

REACTIONS (1)
  - PARAESTHESIA [None]
